FAERS Safety Report 4375960-8 (Version None)
Quarter: 2004Q2

REPORT INFORMATION
  Report Type: 
  Country: None (occurrence: None)
  Receive Date: 20040609
  Receipt Date: 20040609
  Transmission Date: 20050107
  Serious: Yes (Hospitalization)
  Sender: FDA-Public Use
  Company Number: None

PATIENT
  Age: 71 Year
  Sex: Male
  Weight: 83.5 kg

DRUGS (15)
  1. ENOXAPARIN SODIUM [Suspect]
     Dosage: 40 MG OQSUBCUTAN
     Route: 058
     Dates: start: 20040123, end: 20040124
  2. METOCLOPRAMIDE HCL [Concomitant]
  3. SIMVASTATIN (ZOCOR) [Concomitant]
  4. ATENOLOL [Concomitant]
  5. FELODIPINE [Concomitant]
  6. LISINOPRIL [Concomitant]
  7. BISMUTH SUBSALICYLATE [Concomitant]
  8. ALBUTEROL [Concomitant]
  9. TERAZOSIN HCL (HYTRIN) [Concomitant]
  10. SPIRONOLACTONE [Concomitant]
  11. NABUMETONE [Concomitant]
  12. GABAPENTIN [Concomitant]
  13. KETOROLAC TROMETHAMINE [Concomitant]
  14. BISACODYL(ENTERIC COATED) [Concomitant]
  15. HYDROCHLOROTHIAZIDE [Concomitant]

REACTIONS (1)
  - UPPER GASTROINTESTINAL HAEMORRHAGE [None]
